FAERS Safety Report 10074601 (Version 1)
Quarter: 2014Q2

REPORT INFORMATION
  Report Type: Report from Study
  Country: US (occurrence: US)
  Receive Date: 20140411
  Receipt Date: 20140411
  Transmission Date: 20141212
  Serious: Yes (Other)
  Sender: FDA-Public Use
  Company Number: US-GILEAD-2014-0099105

PATIENT
  Age: 57 Year
  Sex: Female

DRUGS (2)
  1. RIBAVIRIN [Concomitant]
  2. SOFOSBUVIR [Suspect]
     Indication: CHRONIC HEPATITIS C
     Dosage: 400 MG, UNK
     Route: 065
     Dates: start: 201403

REACTIONS (5)
  - Neoplasm malignant [Unknown]
  - Abdominal distension [Unknown]
  - Fatigue [Unknown]
  - Asthenia [Unknown]
  - Dyspnoea [Unknown]
